FAERS Safety Report 6971995-7 (Version None)
Quarter: 2010Q3

REPORT INFORMATION
  Report Type: 
  Country: None (occurrence: None)
  Receive Date: 20100908
  Receipt Date: 20100908
  Transmission Date: 20110219
  Serious: Yes (Life-Threatening, Disabling)
  Sender: FDA-Public Use
  Company Number: None

PATIENT
  Age: 60 Year
  Sex: Female
  Weight: 72.5755 kg

DRUGS (1)
  1. BACTRIM [Suspect]
     Indication: URINARY TRACT INFECTION
     Dosage: 1 TABLET
     Dates: start: 20071114, end: 20071128

REACTIONS (4)
  - HYPOPHAGIA [None]
  - MOUTH ULCERATION [None]
  - ORAL HERPES [None]
  - STEVENS-JOHNSON SYNDROME [None]
